FAERS Safety Report 22174420 (Version 3)
Quarter: 2025Q2

REPORT INFORMATION
  Report Type: Spontaneous
  Country: US (occurrence: US)
  Receive Date: 20230405
  Receipt Date: 20250408
  Transmission Date: 20250716
  Serious: No
  Sender: PIRAMAL
  Company Number: US-PCCINC-2023-PEL-000160

PATIENT

DRUGS (5)
  1. GABLOFEN [Suspect]
     Active Substance: BACLOFEN
     Indication: Product used for unknown indication
     Route: 037
  2. GABLOFEN [Suspect]
     Active Substance: BACLOFEN
     Route: 037
  3. GABLOFEN [Suspect]
     Active Substance: BACLOFEN
     Route: 037
  4. GABLOFEN [Suspect]
     Active Substance: BACLOFEN
     Route: 037
  5. BACLOFEN [Concomitant]
     Active Substance: BACLOFEN
     Indication: Product used for unknown indication
     Route: 048

REACTIONS (3)
  - Pruritus [Unknown]
  - Muscle spasticity [Not Recovered/Not Resolved]
  - Maternal exposure during pregnancy [Unknown]
